FAERS Safety Report 4334980-X (Version None)
Quarter: 2004Q2

REPORT INFORMATION
  Report Type: 
  Country: None (occurrence: None)
  Receive Date: 20040408
  Receipt Date: 20040213
  Transmission Date: 20050107
  Serious: Yes (Other)
  Sender: FDA-Public Use
  Company Number: US-ROCHE-358958

PATIENT
  Age: 43 Year
  Sex: Male
  Weight: 64.9 kg

DRUGS (21)
  1. FUZEON [Suspect]
     Indication: HIV INFECTION
     Route: 058
     Dates: start: 20030613
  2. ENFUVIRTIDE [Suspect]
     Indication: HIV INFECTION
     Route: 058
     Dates: start: 20021224, end: 20030613
  3. ENFUVIRTIDE [Suspect]
     Route: 058
     Dates: start: 20010221, end: 20010330
  4. ENFUVIRTIDE [Suspect]
     Route: 058
     Dates: start: 20010413, end: 20010808
  5. ENFUVIRTIDE [Suspect]
     Route: 058
     Dates: start: 20010809, end: 20011026
  6. ENFUVIRTIDE [Suspect]
     Route: 058
     Dates: start: 20011107, end: 20011111
  7. ENFUVIRTIDE [Suspect]
     Route: 058
     Dates: start: 20020207, end: 20021223
  8. ANTIRETROVIRAL NOS [Concomitant]
     Indication: HIV INFECTION
  9. EPIVIR [Concomitant]
     Indication: HIV INFECTION
     Dates: start: 20020207, end: 20030613
  10. TENOFOVIR [Concomitant]
     Indication: HIV INFECTION
     Dates: start: 20020207, end: 20030613
  11. AMPRENAVIR [Concomitant]
     Indication: HIV INFECTION
     Dates: start: 20020207, end: 20030613
  12. RITONAVIR [Concomitant]
     Indication: HIV INFECTION
     Dates: start: 20010221, end: 20030613
  13. LOPINAVIR [Concomitant]
     Indication: HIV INFECTION
     Dates: start: 20020207, end: 20030613
  14. TESTOSTERONE [Concomitant]
     Indication: HYPOGONADISM
  15. BACTRIM [Concomitant]
  16. ZOVIRAX [Concomitant]
  17. IMODIUM [Concomitant]
  18. VICODIN [Concomitant]
     Indication: NEUROPATHY PERIPHERAL
  19. VALTREX [Concomitant]
  20. LOMOTIL [Concomitant]
     Indication: PROPHYLAXIS
     Dates: start: 20020213
  21. PRAVACHOL [Concomitant]
     Dates: start: 20021001

REACTIONS (4)
  - FOOT FRACTURE [None]
  - IMPAIRED HEALING [None]
  - MYALGIA [None]
  - OSTEOPOROSIS [None]
